FAERS Safety Report 7668093-6 (Version None)
Quarter: 2011Q3

REPORT INFORMATION
  Report Type: 
  Country: None (occurrence: None)
  Receive Date: 20110808
  Receipt Date: 20110727
  Transmission Date: 20111222
  Serious: Yes (Other)
  Sender: FDA-Public Use
  Company Number: CA-JNJFOC-20110800699

PATIENT
  Sex: Female

DRUGS (1)
  1. REMICADE [Suspect]
     Indication: ILL-DEFINED DISORDER
     Route: 042
     Dates: start: 20100624, end: 20101001

REACTIONS (2)
  - INTESTINAL OPERATION [None]
  - CONDITION AGGRAVATED [None]
